FAERS Safety Report 4933799-6 (Version None)
Quarter: 2006Q1

REPORT INFORMATION
  Report Type: 
  Country: None (occurrence: None)
  Receive Date: 20060306
  Receipt Date: 20060201
  Transmission Date: 20060701
  Serious: Yes (Disabling, Other)
  Sender: FDA-Public Use
  Company Number: US-MERCK-0602USA00285

PATIENT
  Age: 58 Year
  Sex: Male
  Weight: 114 kg

DRUGS (2)
  1. VYTORIN [Suspect]
     Indication: BLOOD TRIGLYCERIDES INCREASED
     Route: 048
     Dates: start: 20060201, end: 20060201
  2. VYTORIN [Suspect]
     Route: 048
     Dates: start: 20060114, end: 20060129

REACTIONS (3)
  - DIZZINESS [None]
  - MUSCLE SPASMS [None]
  - TINNITUS [None]
